FAERS Safety Report 6636403-4 (Version None)
Quarter: 2010Q1

REPORT INFORMATION
  Report Type: 
  Country: None (occurrence: None)
  Receive Date: 20100316
  Receipt Date: 20100309
  Transmission Date: 20100710
  Serious: Yes (Death)
  Sender: FDA-Public Use
  Company Number: SE-ELI_LILLY_AND_COMPANY-SE201003002986

PATIENT
  Sex: Male

DRUGS (1)
  1. BYETTA [Suspect]
     Indication: TYPE 2 DIABETES MELLITUS
     Dosage: 10 UG, 2/D
     Dates: start: 20080806, end: 20091215

REACTIONS (3)
  - ABDOMINAL DISCOMFORT [None]
  - GLYCOSYLATED HAEMOGLOBIN INCREASED [None]
  - PANCREATIC CARCINOMA [None]
